FAERS Safety Report 23357148 (Version 1)
Quarter: 2023Q4

REPORT INFORMATION
  Report Type: Spontaneous
  Country: US (occurrence: None)
  Receive Date: 20231229
  Receipt Date: 20231229
  Transmission Date: 20240110
  Serious: No
  Sender: FDA-Public Use
  Company Number: None

PATIENT
  Age: 53 Year
  Sex: Female

DRUGS (1)
  1. HUMIRA [Suspect]
     Active Substance: ADALIMUMAB
     Indication: Rheumatoid arthritis
     Route: 058
     Dates: start: 20231021, end: 20231229

REACTIONS (4)
  - Injection site erythema [None]
  - Injection site swelling [None]
  - Injection site urticaria [None]
  - Urticaria [None]

NARRATIVE: CASE EVENT DATE: 20231201
